FAERS Safety Report 10010863 (Version 2)
Quarter: 2014Q1

REPORT INFORMATION
  Report Type: Spontaneous
  Country: US (occurrence: US)
  Receive Date: 20140314
  Receipt Date: 20140314
  Transmission Date: 20141002
  Serious: No
  Sender: FDA-Public Use
  Company Number: US-DRREDDYS-USA/USA/13/0029447

PATIENT
  Age: 75 Year
  Sex: Male
  Weight: 74.91 kg

DRUGS (6)
  1. CETIRIZINE 10 MG [Suspect]
     Indication: RHINITIS ALLERGIC
     Route: 048
     Dates: start: 20130429, end: 20130504
  2. CETIRIZINE 10 MG [Suspect]
     Indication: SINUSITIS
  3. AMOXICILLIN [Concomitant]
     Indication: SINUSITIS
  4. ZIAC [Concomitant]
     Indication: PRODUCT USED FOR UNKNOWN INDICATION
     Route: 065
  5. ADVIL [Concomitant]
     Indication: PAIN
     Dosage: 1-2 TABLETS AS NEEDED
     Route: 065
  6. MUCINEX [Concomitant]
     Indication: SINUSITIS
     Route: 065

REACTIONS (1)
  - Sedation [Not Recovered/Not Resolved]
